FAERS Safety Report 23902842 (Version 1)
Quarter: 2024Q2

REPORT INFORMATION
  Report Type: Spontaneous
  Country: AE (occurrence: None)
  Receive Date: 20240527
  Receipt Date: 20240527
  Transmission Date: 20240716
  Serious: Yes (Life-Threatening, Hospitalization, Other)
  Sender: FDA-Public Use
  Company Number: AE-MLMSERVICE-20240513-PI060764-00218-1

PATIENT
  Age: 49 Year
  Sex: Female

DRUGS (1)
  1. METHOTREXATE [Suspect]
     Active Substance: METHOTREXATE
     Indication: Rheumatoid arthritis

REACTIONS (10)
  - Toxicity to various agents [Unknown]
  - Contraindicated product prescribed [Unknown]
  - Contraindicated product administered [Unknown]
  - Product prescribing error [Unknown]
  - Heavy menstrual bleeding [Unknown]
  - Myelosuppression [Recovered/Resolved]
  - Mouth ulceration [Unknown]
  - Pyrexia [Unknown]
  - Pharyngeal erythema [Unknown]
  - Pancytopenia [Unknown]
